FAERS Safety Report 18877081 (Version 8)
Quarter: 2021Q3

REPORT INFORMATION
  Report Type: Report from Study
  Country: US (occurrence: US)
  Receive Date: 20210210
  Receipt Date: 20210920
  Transmission Date: 20211014
  Serious: Yes (Hospitalization, Other)
  Sender: FDA-Public Use
  Company Number: NVSC2021US025509

PATIENT
  Sex: Male
  Weight: 83.9 kg

DRUGS (8)
  1. TREPROSTINIL. [Suspect]
     Active Substance: TREPROSTINIL
     Dosage: UNK UNK, CONT (35 NG/KG/MIN)
     Route: 042
  2. TREPROSTINIL. [Suspect]
     Active Substance: TREPROSTINIL
     Dosage: UNK UNK, CONT (54 NG/KG/MIN)
     Route: 042
  3. TREPROSTINIL. [Suspect]
     Active Substance: TREPROSTINIL
     Dosage: CONT, 60 NG/KG/MIN
     Route: 058
  4. TREPROSTINIL. [Suspect]
     Active Substance: TREPROSTINIL
     Indication: PULMONARY ARTERIAL HYPERTENSION
     Dosage: UNK UNK, CONT (16 NG/KG/MIN)
     Route: 042
     Dates: start: 20210110
  5. OPSUMIT [Concomitant]
     Active Substance: MACITENTAN
     Indication: PRODUCT USED FOR UNKNOWN INDICATION
     Dosage: UNK
     Route: 065
  6. TREPROSTINIL. [Suspect]
     Active Substance: TREPROSTINIL
     Dosage: UNK UNK, CONT(23 NG/KG/MIN)
     Route: 042
  7. UPTRAVI [Concomitant]
     Active Substance: SELEXIPAG
     Indication: PRODUCT USED FOR UNKNOWN INDICATION
     Route: 065
  8. SILDENAFIL CITRATE. [Concomitant]
     Active Substance: SILDENAFIL CITRATE
     Indication: PRODUCT USED FOR UNKNOWN INDICATION
     Dosage: UNK
     Route: 065

REACTIONS (10)
  - Skin reaction [Unknown]
  - Weight decreased [Unknown]
  - Vascular device infection [Unknown]
  - Catheter site haemorrhage [Unknown]
  - Pyrexia [Unknown]
  - Asthenia [Unknown]
  - Injection site infection [Unknown]
  - Complication associated with device [Unknown]
  - Nausea [Unknown]
  - Injection site pain [Unknown]
